FAERS Safety Report 5710113-X (Version None)
Quarter: 2008Q2

REPORT INFORMATION
  Report Type: 
  Country: None (occurrence: None)
  Receive Date: 20080418
  Receipt Date: 20071029
  Transmission Date: 20081010
  Serious: No
  Sender: FDA-Public Use
  Company Number: US-ASTRAZENECA-2007UW25019

PATIENT
  Age: 61 Year
  Sex: Female
  Weight: 79.4 kg

DRUGS (8)
  1. METOPROLOL SUCCINATE [Suspect]
     Indication: HYPERTENSION
     Route: 048
  2. MAXZIDE [Concomitant]
  3. ZETIA [Concomitant]
  4. PLAQUENIL [Concomitant]
  5. MULTI-VITAMIN [Concomitant]
  6. PREVACID [Concomitant]
  7. LOVAZA [Concomitant]
  8. ASPIRIN [Concomitant]

REACTIONS (3)
  - CHEST DISCOMFORT [None]
  - FLUSHING [None]
  - PALPITATIONS [None]
